FAERS Safety Report 9711213 (Version 1)
Quarter: 2013Q4

REPORT INFORMATION
  Report Type: Spontaneous
  Country: US (occurrence: US)
  Receive Date: 20131126
  Receipt Date: 20131126
  Transmission Date: 20140711
  Serious: No
  Sender: FDA-Public Use
  Company Number: US-BRISTOL-MYERS SQUIBB COMPANY-18737858

PATIENT
  Age: 52 Year
  Sex: Female

DRUGS (4)
  1. BYDUREON 2MG SUSPENSION [Suspect]
     Indication: TYPE 2 DIABETES MELLITUS
     Dosage: NO OF INJECTIONS:3
     Route: 058
     Dates: start: 201303
  2. BYSTOLIC [Concomitant]
     Route: 048
  3. LOSARTAN [Concomitant]
     Route: 048
  4. LANTUS [Concomitant]
     Dosage: 1DF:100 UNITS
     Route: 058

REACTIONS (3)
  - Injection site nodule [Not Recovered/Not Resolved]
  - Injection site erythema [Not Recovered/Not Resolved]
  - Injection site pruritus [Not Recovered/Not Resolved]
